FAERS Safety Report 13356168 (Version 2)
Quarter: 2017Q2

REPORT INFORMATION
  Report Type: Report from Study
  Country: US (occurrence: US)
  Receive Date: 20170321
  Receipt Date: 20170629
  Transmission Date: 20170830
  Serious: No
  Sender: FDA-Public Use
  Company Number: PHEH2017US008122

PATIENT
  Sex: Male

DRUGS (1)
  1. ENTRESTO [Suspect]
     Active Substance: SACUBITRIL\VALSARTAN
     Indication: PRODUCT USED FOR UNKNOWN INDICATION
     Dosage: 50 MG (SACUBITRIL 26 MG/VALSARTAN 24 MG), BID
     Route: 065
     Dates: start: 201701

REACTIONS (3)
  - Confusional state [Unknown]
  - Hypotension [Unknown]
  - Dizziness [Recovered/Resolved]
